FAERS Safety Report 5976002-0 (Version None)
Quarter: 2008Q4

REPORT INFORMATION
  Report Type: 
  Country: None (occurrence: None)
  Receive Date: 20081202
  Receipt Date: 20081125
  Transmission Date: 20090506
  Serious: Yes (Disabling, Other)
  Sender: FDA-Public Use
  Company Number: PHEH2008US06931

PATIENT
  Sex: Female
  Weight: 58.957 kg

DRUGS (4)
  1. RECLAST [Suspect]
     Dosage: EVERY YEAR
     Dates: start: 20080806
  2. VYTORIN [Concomitant]
     Indication: BLOOD CHOLESTEROL
     Dosage: 10/20 DAILY
     Route: 048
  3. SYNTHROID [Concomitant]
     Indication: HYPOTHYROIDISM
     Dosage: 0.5 UNK, QD
     Route: 048
  4. VITAMIN B-12 [Concomitant]
     Indication: VITAMIN B12 DEFICIENCY
     Dosage: 1CC EVERY 2 WEEKS

REACTIONS (2)
  - ARTHRALGIA [None]
  - BLOOD URINE PRESENT [None]
